FAERS Safety Report 14731784 (Version 2)
Quarter: 2018Q2

REPORT INFORMATION
  Report Type: Spontaneous
  Country: GB (occurrence: GB)
  Receive Date: 20180407
  Receipt Date: 20180418
  Transmission Date: 20180711
  Serious: Yes (Other)
  Sender: FDA-Public Use
  Company Number: GB-CONCORDIA PHARMACEUTICALS INC.-GSH201804-001167

PATIENT
  Age: 63 Month
  Sex: Male
  Weight: 21 kg

DRUGS (5)
  1. PREDNISOLONE. [Suspect]
     Active Substance: PREDNISOLONE
     Indication: UVEITIS
     Route: 048
  2. PREDNISOLONE. [Suspect]
     Active Substance: PREDNISOLONE
     Route: 048
  3. MYCOPHENOLATE MOFETIL. [Concomitant]
     Active Substance: MYCOPHENOLATE MOFETIL
     Indication: UVEITIS
     Route: 048
  4. PREDNISOLONE. [Suspect]
     Active Substance: PREDNISOLONE
     Dosage: TWICE DAILY TO BOTH EYES (12 HR)
     Route: 047
  5. CYCLOPENTOLATE 1 % [Concomitant]
     Indication: UVEITIS
     Route: 047

REACTIONS (2)
  - Idiopathic intracranial hypertension [Recovered/Resolved]
  - Drug withdrawal syndrome [Recovered/Resolved]
